FAERS Safety Report 21867891 (Version 1)
Quarter: 2023Q1

REPORT INFORMATION
  Report Type: Report from Study
  Country: US (occurrence: US)
  Receive Date: 20230116
  Receipt Date: 20230116
  Transmission Date: 20230418
  Serious: No
  Sender: FDA-Public Use
  Company Number: US-ABBVIE-4235606

PATIENT
  Age: 51 Year
  Sex: Female

DRUGS (1)
  1. RINVOQ [Suspect]
     Active Substance: UPADACITINIB
     Indication: Rheumatoid arthritis
     Dosage: LAST ADMIN DATE WAS 2022
     Route: 048
     Dates: start: 202208

REACTIONS (3)
  - Respiratory tract infection [Unknown]
  - General symptom [Unknown]
  - Illness [Unknown]

NARRATIVE: CASE EVENT DATE: 20221201
